FAERS Safety Report 10709527 (Version 1)
Quarter: 2015Q1

REPORT INFORMATION
  Report Type: Spontaneous
  Country: US (occurrence: None)
  Receive Date: 20150113
  Receipt Date: 20150113
  Transmission Date: 20150721
  Serious: Yes (Other)
  Sender: FDA-Public Use
  Company Number: None

PATIENT
  Age: 70 Year
  Sex: Male
  Weight: 77.11 kg

DRUGS (1)
  1. SYMBICORT [Suspect]
     Active Substance: BUDESONIDE\FORMOTEROL FUMARATE DIHYDRATE
     Indication: CHRONIC OBSTRUCTIVE PULMONARY DISEASE
     Dosage: 1 PUFF TWICE DAILY INHALATION?
     Route: 055

REACTIONS (7)
  - Respiratory disorder [None]
  - Prostatomegaly [None]
  - Upper respiratory tract infection [None]
  - Insomnia [None]
  - Urinary tract infection [None]
  - Eye disorder [None]
  - Dry mouth [None]

NARRATIVE: CASE EVENT DATE: 20141216
